FAERS Safety Report 9019887 (Version 1)
Quarter: 2013Q1

REPORT INFORMATION
  Report Type: Spontaneous
  Country: IT (occurrence: IT)
  Receive Date: 20130118
  Receipt Date: 20130118
  Transmission Date: 20140127
  Serious: Yes (Life-Threatening)
  Sender: FDA-Public Use
  Company Number: IT-PFIZER INC-2012270426

PATIENT
  Age: 48 Year
  Sex: Male

DRUGS (3)
  1. TAZOCIN [Suspect]
     Indication: PSEUDOMONAS INFECTION
     Dosage: 12 G, 1X/DAY
     Route: 042
     Dates: start: 20120917, end: 20121011
  2. COLIMICINA [Concomitant]
     Route: 065
  3. AMIKACIN SULFATE [Concomitant]

REACTIONS (3)
  - Anaemia [Recovered/Resolved]
  - Leukopenia [Recovered/Resolved]
  - Neutropenia [Recovered/Resolved]
